FAERS Safety Report 8993045 (Version 1)
Quarter: 2013Q1

REPORT INFORMATION
  Report Type: Spontaneous
  Country: US (occurrence: US)
  Receive Date: 20130102
  Receipt Date: 20130102
  Transmission Date: 20140127
  Serious: Yes (Death, Hospitalization)
  Sender: FDA-Public Use
  Company Number: US-JNJFOC-20121211725

PATIENT
  Sex: Female

DRUGS (4)
  1. RISPERDAL CONSTA [Suspect]
     Indication: HALLUCINATION, AUDITORY
     Route: 030
     Dates: start: 20121102
  2. RISPERDAL CONSTA [Suspect]
     Indication: HALLUCINATION, AUDITORY
     Route: 030
  3. RISPERDAL CONSTA [Suspect]
     Indication: HALLUCINATION, AUDITORY
     Route: 030
  4. RISPERDAL CONSTA [Suspect]
     Indication: HALLUCINATION, AUDITORY
     Route: 030
     Dates: start: 2010

REACTIONS (11)
  - Diabetes mellitus [Fatal]
  - Myocardial infarction [Fatal]
  - Blister [Fatal]
  - Local swelling [Fatal]
  - Infection [Fatal]
  - Hypertension [Fatal]
  - Platelet disorder [Fatal]
  - Treatment noncompliance [Fatal]
  - Hallucination, auditory [Unknown]
  - Adverse drug reaction [Unknown]
  - Pain [Unknown]
